FAERS Safety Report 17760115 (Version 2)
Quarter: 2020Q2

REPORT INFORMATION
  Report Type: Spontaneous
  Country: EE (occurrence: EE)
  Receive Date: 20200508
  Receipt Date: 20200512
  Transmission Date: 20200714
  Serious: Yes (Other)
  Sender: FDA-Public Use
  Company Number: EE-ACCORD-181040

PATIENT
  Age: 30 Year
  Sex: Female

DRUGS (5)
  1. CICLOSPORIN [Suspect]
     Active Substance: CYCLOSPORINE
     Indication: RASH
     Dosage: 100 MG, 1D
  2. PARACETAMOL [Suspect]
     Active Substance: ACETAMINOPHEN
     Indication: ARTHRALGIA
     Dosage: UNK
  3. RUPATADINE/RUPATADINE FUMARATE [Suspect]
     Active Substance: RUPATADINE FUMARATE
     Indication: URTICARIA
     Dosage: UNK, 1D
  4. RUPATADINE/RUPATADINE FUMARATE [Suspect]
     Active Substance: RUPATADINE FUMARATE
     Indication: PRODUCT USED FOR UNKNOWN INDICATION
     Dosage: 1 DF, 1D (1 TABLET PER DAY)
  5. MONTELUKAST [Suspect]
     Active Substance: MONTELUKAST SODIUM
     Indication: URTICARIA
     Dosage: 10 MG, 1D

REACTIONS (11)
  - Vomiting [Unknown]
  - Sensation of foreign body [Unknown]
  - Rash [Unknown]
  - Abdominal pain [Unknown]
  - Condition aggravated [Unknown]
  - Rash macular [Unknown]
  - Angioedema [Unknown]
  - Urticaria [Unknown]
  - Abortion spontaneous [Unknown]
  - Blood immunoglobulin E increased [Unknown]
  - Drug ineffective [Unknown]
